FAERS Safety Report 15976633 (Version 2)
Quarter: 2019Q2

REPORT INFORMATION
  Report Type: Spontaneous
  Country: US (occurrence: US)
  Receive Date: 20190218
  Receipt Date: 20190418
  Transmission Date: 20190711
  Serious: Yes (Death, Hospitalization)
  Sender: FDA-Public Use
  Company Number: US-CLOVIS ONCOLOGY-CLO-2019-000226

PATIENT
  Age: 52 Year
  Sex: Female

DRUGS (8)
  1. LEVOTHYROXINE. [Concomitant]
     Active Substance: LEVOTHYROXINE
     Indication: PRODUCT USED FOR UNKNOWN INDICATION
  2. OXYCODONE [Concomitant]
     Active Substance: OXYCODONE
     Indication: PRODUCT USED FOR UNKNOWN INDICATION
     Dosage: 5 MG, Q6H, PRN
  3. OXYCONTIN [Concomitant]
     Active Substance: OXYCODONE HYDROCHLORIDE
     Indication: PRODUCT USED FOR UNKNOWN INDICATION
     Dosage: 10 MG, UNK
  4. RUBRACA [Suspect]
     Active Substance: RUCAPARIB CAMSYLATE
     Indication: GENE MUTATION
  5. RUBRACA [Suspect]
     Active Substance: RUCAPARIB CAMSYLATE
     Indication: CERVIX CARCINOMA
     Dosage: 600 MG, BID
     Route: 048
     Dates: start: 20181214, end: 20190107
  6. RUBRACA [Suspect]
     Active Substance: RUCAPARIB CAMSYLATE
     Indication: CERVIX CARCINOMA
  7. APIXABAN [Concomitant]
     Active Substance: APIXABAN
     Indication: PULMONARY EMBOLISM
     Dosage: 5 MG, QD
     Route: 048
  8. SERTRALINE [Concomitant]
     Active Substance: SERTRALINE HYDROCHLORIDE
     Indication: PRODUCT USED FOR UNKNOWN INDICATION
     Dosage: 50 MG, QD

REACTIONS (3)
  - Anaemia [Unknown]
  - Product use in unapproved indication [Unknown]
  - Malignant neoplasm progression [Fatal]

NARRATIVE: CASE EVENT DATE: 20190107
